FAERS Safety Report 24457087 (Version 1)
Quarter: 2024Q4

REPORT INFORMATION
  Report Type: Spontaneous
  Country: US (occurrence: US)
  Receive Date: 20241018
  Receipt Date: 20241018
  Transmission Date: 20250114
  Serious: No
  Sender: BAXTER
  Company Number: US-BAXTER-2024BAX026175

PATIENT

DRUGS (2)
  1. REGADENOSON [Suspect]
     Active Substance: REGADENOSON
     Dosage: (SINGLE-DOSE 5 ML) AT AN UNSPECIFIED FREQUENCY
     Route: 065
  2. REGADENOSON [Suspect]
     Active Substance: REGADENOSON
     Dosage: (SINGLE-DOSE 5 ML) AT AN UNSPECIFIED FREQUENCY
     Route: 065

REACTIONS (1)
  - No adverse event [Unknown]
